FAERS Safety Report 18950006 (Version 1)
Quarter: 2021Q1

REPORT INFORMATION
  Report Type: Report from Study
  Country: CN (occurrence: CN)
  Receive Date: 20210227
  Receipt Date: 20210227
  Transmission Date: 20210420
  Serious: Yes (Hospitalization)
  Sender: FDA-Public Use
  Company Number: NVSC2020CN347673

PATIENT
  Age: 45 Year
  Sex: Female
  Weight: 76 kg

DRUGS (3)
  1. CALCIUM [Concomitant]
     Active Substance: CALCIUM
     Indication: PROPHYLAXIS
     Dosage: UNK
     Route: 065
     Dates: start: 20181107
  2. LETROZOLE. [Suspect]
     Active Substance: LETROZOLE
     Indication: INVASIVE DUCTAL BREAST CARCINOMA
     Dosage: 2.5 MG, QD
     Route: 048
     Dates: start: 20181124
  3. GOSERELIN [Suspect]
     Active Substance: GOSERELIN
     Indication: INVASIVE DUCTAL BREAST CARCINOMA
     Dosage: 3.6 MG, QMO
     Route: 058
     Dates: start: 20181124

REACTIONS (4)
  - Type IV hypersensitivity reaction [Unknown]
  - Ludwig angina [Recovered/Resolved]
  - Abscess [Unknown]
  - Dermal cyst [Unknown]

NARRATIVE: CASE EVENT DATE: 20201109
